FAERS Safety Report 13470430 (Version 1)
Quarter: 2017Q2

REPORT INFORMATION
  Report Type: Spontaneous
  Country: US (occurrence: US)
  Receive Date: 20170421
  Receipt Date: 20170421
  Transmission Date: 20170830
  Serious: Yes (Hospitalization)
  Sender: FDA-Public Use
  Company Number: None

PATIENT
  Age: 61 Year
  Sex: Male
  Weight: 76.25 kg

DRUGS (14)
  1. ZEPATIER [Suspect]
     Active Substance: ELBASVIR\GRAZOPREVIR
     Indication: HEPATITIS C
     Dosage: 50/100MG 1XDAILY PO
     Route: 048
     Dates: start: 20161028, end: 20170120
  2. ASPIRIN. [Concomitant]
     Active Substance: ASPIRIN
  3. LOTRIMIN [Concomitant]
     Active Substance: CLOTRIMAZOLE
  4. HYDRODIURIL [Concomitant]
     Active Substance: HYDROCHLOROTHIAZIDE
  5. PAMELOR [Concomitant]
     Active Substance: NORTRIPTYLINE HYDROCHLORIDE
  6. LIPITOR [Concomitant]
     Active Substance: ATORVASTATIN CALCIUM
  7. COLACE [Concomitant]
     Active Substance: DOCUSATE SODIUM
  8. OXYCODONE [Concomitant]
     Active Substance: OXYCODONE
  9. GABAPENTIN. [Concomitant]
     Active Substance: GABAPENTIN
  10. SEROQUEL [Concomitant]
     Active Substance: QUETIAPINE FUMARATE
  11. ALBUTEROL. [Concomitant]
     Active Substance: ALBUTEROL
  12. FLOVENT [Concomitant]
     Active Substance: FLUTICASONE PROPIONATE
  13. DOLOPHINE [Concomitant]
     Active Substance: METHADONE HYDROCHLORIDE
  14. TYLENOL [Concomitant]
     Active Substance: ACETAMINOPHEN

REACTIONS (3)
  - Spinal cord compression [None]
  - Spinal epidural haematoma [None]
  - Spinal cord haematoma [None]

NARRATIVE: CASE EVENT DATE: 20161222
